FAERS Safety Report 4860677-3 (Version None)
Quarter: 2005Q4

REPORT INFORMATION
  Report Type: 
  Country: None (occurrence: None)
  Receive Date: 20051216
  Receipt Date: 20051129
  Transmission Date: 20060501
  Serious: Yes (Other)
  Sender: FDA-Public Use
  Company Number: US200512000036

PATIENT
  Age: 61 Year
  Sex: Male
  Weight: 118.8 kg

DRUGS (15)
  1. HUMALOG MIX 75/25 [Suspect]
     Indication: DIABETES MELLITUS
     Dates: start: 20020101
  2. HUMALOG [Suspect]
     Indication: DIABETES MELLITUS
     Dosage: SLIDING SCALE (16 UNITS AS A BASAL DOSE)
     Dates: start: 20020101
  3. HUMAN INSULIN (RDNA ORIGIN) (HUMAN INSULIN (RDNA ORIGIN) [Suspect]
     Indication: DIABETES MELLITUS
     Dates: start: 19920101
  4. HUMULIN 70/30 [Suspect]
     Indication: DIABETES MELLITUS
  5. METFORMIN HCL [Concomitant]
  6. ECOTRIN (ACETYLSALICYLIC ACID) [Concomitant]
  7. ATENOLOL [Concomitant]
  8. PLAVIX [Concomitant]
  9. PREVACID [Concomitant]
  10. LASIX [Concomitant]
  11. ISOSORBIDE (ISOSORBIDE) [Concomitant]
  12. LISINOPRIL [Concomitant]
  13. ZOCOR [Concomitant]
  14. LANTUS [Concomitant]
  15. DISDOLEN (FOSFOSAL) [Concomitant]

REACTIONS (8)
  - BLOOD HOMOCYSTEINE INCREASED [None]
  - CORONARY ARTERY OCCLUSION [None]
  - DIABETES MELLITUS INADEQUATE CONTROL [None]
  - INITIAL INSOMNIA [None]
  - INJECTION SITE INDURATION [None]
  - PHARMACEUTICAL PRODUCT COMPLAINT [None]
  - WEIGHT DECREASED [None]
  - WEIGHT INCREASED [None]
